FAERS Safety Report 9507737 (Version 2)
Quarter: 2013Q3

REPORT INFORMATION
  Report Type: Report from Study
  Country: US (occurrence: US)
  Receive Date: 20130909
  Receipt Date: 20130912
  Transmission Date: 20140515
  Serious: No
  Sender: FDA-Public Use
  Company Number: US-VERTEX PHARMACEUTICALS INC-2013-009346

PATIENT
  Age: 27 Year
  Sex: Male

DRUGS (10)
  1. VX-770 [Suspect]
     Indication: CYSTIC FIBROSIS
     Dosage: 150 MG, BID
     Dates: start: 20130513
  2. ALBUTEROL [Concomitant]
  3. DULERA [Concomitant]
  4. FLONASE [Concomitant]
  5. SUBOXONE [Concomitant]
  6. NEXIUM [Concomitant]
  7. MEGACE [Concomitant]
  8. CREON [Concomitant]
  9. AQUADEKS [Concomitant]
  10. ADEK [Concomitant]

REACTIONS (2)
  - Lower respiratory tract infection [Recovered/Resolved]
  - Arthralgia [Recovered/Resolved]
